FAERS Safety Report 5331916-X (Version None)
Quarter: 2007Q2

REPORT INFORMATION
  Report Type: 
  Country: None (occurrence: None)
  Receive Date: 20070518
  Receipt Date: 20070502
  Transmission Date: 20071010
  Serious: Yes (Other)
  Sender: FDA-Public Use
  Company Number: 8023365

PATIENT
  Age: 10 Year
  Sex: Female
  Weight: 70 kg

DRUGS (2)
  1. KEPPRA [Suspect]
     Indication: CONVULSION
     Dosage: 500 MG 2/D PO
     Route: 048
     Dates: start: 20060401, end: 20070301
  2. KEPPRA [Suspect]
     Indication: CONVULSION
     Dosage: 2000 MG PO
     Route: 048
     Dates: end: 20070301

REACTIONS (3)
  - CONVULSION [None]
  - FALL [None]
  - NO THERAPEUTIC RESPONSE [None]
